FAERS Safety Report 11841749 (Version 1)
Quarter: 2015Q4

REPORT INFORMATION
  Report Type: Spontaneous
  Country: US (occurrence: US)
  Receive Date: 20151216
  Receipt Date: 20151216
  Transmission Date: 20160305
  Serious: No
  Sender: FDA-Public Use
  Company Number: US-RB-071108-14

PATIENT
  Age: 5 Year
  Sex: Male

DRUGS (2)
  1. DELSYM [Suspect]
     Active Substance: DEXTROMETHORPHAN
     Dosage: 5ML. DRUG WAS LAST USED ON 23-NOV-2014, PATIENT WAS MISTAKENLY GIVEN 5ML OF THE DRUG,FREQUENCY UNK
     Route: 065
     Dates: start: 20141122
  2. DELSYM [Suspect]
     Active Substance: DEXTROMETHORPHAN
     Indication: PRODUCT USED FOR UNKNOWN INDICATION
     Dosage: 2.50ML. PATIENT WAS GIVEN 2.5ML OF THE DRUG,FREQUENCY UNK
     Route: 065
     Dates: start: 20141122

REACTIONS (2)
  - No adverse event [Recovered/Resolved]
  - Accidental overdose [Recovered/Resolved]

NARRATIVE: CASE EVENT DATE: 20141123
